FAERS Safety Report 6917563-4 (Version None)
Quarter: 2010Q3

REPORT INFORMATION
  Report Type: 
  Country: None (occurrence: None)
  Receive Date: 20100806
  Receipt Date: 20100722
  Transmission Date: 20110219
  Serious: Yes (Death)
  Sender: FDA-Public Use
  Company Number: 2010002816

PATIENT
  Age: 72 Year
  Sex: Male

DRUGS (1)
  1. TARCEVA [Suspect]
     Indication: LUNG NEOPLASM MALIGNANT
     Dosage: (150 MG), ORAL
     Route: 048
     Dates: start: 20100223, end: 20100523

REACTIONS (3)
  - CARDIAC FAILURE ACUTE [None]
  - ORTHOPNOEA [None]
  - TACHYPNOEA [None]
